FAERS Safety Report 22264880 (Version 1)
Quarter: 2023Q2

REPORT INFORMATION
  Report Type: Report from Study
  Country: DK (occurrence: DK)
  Receive Date: 20230428
  Receipt Date: 20230428
  Transmission Date: 20230722
  Serious: Yes (Other)
  Sender: FDA-Public Use
  Company Number: DK-ORESUND-22OPAZA2077P

PATIENT
  Age: 68 Year
  Sex: Male

DRUGS (5)
  1. FINASTERIDE [Suspect]
     Active Substance: FINASTERIDE
     Indication: Product used for unknown indication
     Dosage: UNK
     Route: 065
  2. ZOLEDRONIC ACID [Suspect]
     Active Substance: ZOLEDRONIC ACID
     Indication: Osteoporosis
     Dosage: 5 MILLIGRAM, APPROXIMATELY 6 MONTHS AFTER THE LAST DENOSUMAB INJECTION
     Route: 065
  3. DENOSUMAB [Suspect]
     Active Substance: DENOSUMAB
     Indication: Fracture
     Dosage: 60 MILLIGRAM, 6 MONTH (FOR 3 YEARS)
     Route: 065
  4. DENOSUMAB [Suspect]
     Active Substance: DENOSUMAB
     Indication: Prophylaxis
  5. DENOSUMAB [Suspect]
     Active Substance: DENOSUMAB
     Indication: Osteoporosis

REACTIONS (6)
  - Osteoporosis [Unknown]
  - Rebound effect [Unknown]
  - Drug ineffective [Unknown]
  - Bone loss [Unknown]
  - Bone density decreased [Unknown]
  - Therapy cessation [Unknown]
